FAERS Safety Report 7826821 (Version 10)
Quarter: 2014Q4

REPORT INFORMATION
  Report Type: Spontaneous
  Country: US (occurrence: US)
  Receive Date: 20101130
  Receipt Date: 20141015
  Transmission Date: 20150529
  Serious: Yes (Hospitalization, Other)
  Sender: FDA-Public Use
  Company Number: US-009507513-2010SP006063

PATIENT
  Sex: Female
  Weight: 81.65 kg

DRUGS (15)
  1. COUMADIN [Suspect]
     Active Substance: WARFARIN SODIUM
     Indication: PULMONARY EMBOLISM
     Dosage: 5 MG, QD
     Dates: start: 200806
  2. KEPPRA [Concomitant]
     Active Substance: LEVETIRACETAM
     Indication: EPILEPSY
     Dosage: UNCLEAR WHETHER 16JAN RENEWAL OR START DATE
     Route: 048
     Dates: start: 20080116
  3. SINGULAIR [Concomitant]
     Active Substance: MONTELUKAST SODIUM
     Dosage: 10 MG, QD
     Route: 048
     Dates: start: 20071004
  4. FLONASE [Concomitant]
     Active Substance: FLUTICASONE PROPIONATE
     Dosage: 50 ?G, QD
     Route: 045
     Dates: start: 20071004
  5. ANAPROX DS [Concomitant]
     Active Substance: NAPROXEN SODIUM
     Dosage: 550 MG, BID
     Dates: start: 20071213
  6. IBUPROFEN. [Concomitant]
     Active Substance: IBUPROFEN
     Dosage: Q 8 HRS PRN
     Route: 048
     Dates: start: 20080207
  7. HYDROCHLOROTHIAZIDE. [Concomitant]
     Active Substance: HYDROCHLOROTHIAZIDE
     Indication: HYPERTENSION
     Dosage: 12.5 MG, UNK
     Dates: start: 200712
  8. BACTRIM DS [Concomitant]
     Active Substance: SULFAMETHOXAZOLE\TRIMETHOPRIM
     Indication: CYSTITIS
     Dosage: 160/800 MG
     Route: 048
     Dates: start: 20080221
  9. VALIUM [Concomitant]
     Active Substance: DIAZEPAM
     Dosage: 2 MG, ONCE
     Route: 048
     Dates: start: 200802, end: 200802
  10. CYMBALTA [Concomitant]
     Active Substance: DULOXETINE HYDROCHLORIDE
  11. DIFLUCAN [Concomitant]
     Active Substance: FLUCONAZOLE
     Indication: VULVOVAGINAL MYCOTIC INFECTION
     Dosage: 150 MG, ONCE
     Route: 048
     Dates: start: 20080214, end: 20080214
  12. BENAZEPRIL HYDROCHLORIDE (+) HYDROCHLOROTHIAZIDE [Concomitant]
     Dosage: 20/12.5 MG
  13. HYDROCODONE POLISTIREX (+) PHENYLTOLOXAMINE POLISTIREX [Concomitant]
     Dosage: 1 TSP
  14. NUVARING [Suspect]
     Active Substance: ETHINYL ESTRADIOL\ETONOGESTREL
     Indication: UTERINE LEIOMYOMA
     Dates: start: 200712, end: 20080622
  15. FLAGYL [Concomitant]
     Active Substance: METRONIDAZOLE\METRONIDAZOLE HYDROCHLORIDE
     Dosage: 500 MG, BID
     Route: 048
     Dates: start: 20080207

REACTIONS (41)
  - Dyspnoea [Unknown]
  - Vaginal haemorrhage [Unknown]
  - Vulvovaginal mycotic infection [Unknown]
  - Sleep apnoea syndrome [Unknown]
  - Hypokalaemia [Unknown]
  - Neuropathy peripheral [Unknown]
  - Road traffic accident [Unknown]
  - Joint injury [Not Recovered/Not Resolved]
  - Paraesthesia [Unknown]
  - Dysuria [Unknown]
  - Carpal tunnel syndrome [Unknown]
  - Anxiety [Recovering/Resolving]
  - Pollakiuria [Unknown]
  - Head injury [Unknown]
  - Adverse drug reaction [Recovered/Resolved]
  - Bruxism [Unknown]
  - Weight increased [Unknown]
  - Insomnia [Unknown]
  - Cystitis [Unknown]
  - Abdominal pain lower [Unknown]
  - Adverse drug reaction [Unknown]
  - Accident at work [Unknown]
  - Off label use [Unknown]
  - Influenza like illness [Recovered/Resolved]
  - Pulmonary embolism [Recovered/Resolved]
  - Sinus tachycardia [Unknown]
  - Seizure [Unknown]
  - Blood testosterone decreased [Unknown]
  - Constipation [Unknown]
  - Adverse drug reaction [Recovered/Resolved]
  - Somnolence [Unknown]
  - Back injury [Unknown]
  - Mammogram abnormal [Unknown]
  - Multiple sclerosis [Unknown]
  - Encephalopathy [Unknown]
  - Coagulopathy [Unknown]
  - Dizziness [Unknown]
  - Urinary tract infection [Unknown]
  - Hangover [Recovered/Resolved]
  - Depression [Unknown]
  - Occipital neuralgia [Unknown]

NARRATIVE: CASE EVENT DATE: 20080214
